FAERS Safety Report 4612778-2 (Version None)
Quarter: 2005Q1

REPORT INFORMATION
  Report Type: 
  Country: None (occurrence: None)
  Receive Date: 20050318
  Receipt Date: 20050208
  Transmission Date: 20050727
  Serious: Yes (Hospitalization, Other)
  Sender: FDA-Public Use
  Company Number: US-MERCK-0502USA00804

PATIENT
  Age: 68 Year
  Sex: Male

DRUGS (17)
  1. VIOXX [Suspect]
     Route: 048
  2. VIOXX [Suspect]
     Route: 065
     Dates: end: 20040901
  3. OXYCONTIN [Concomitant]
     Route: 065
  4. NEURONTIN [Concomitant]
     Route: 065
  5. NEURONTIN [Concomitant]
     Route: 065
  6. ASPIRIN [Concomitant]
     Route: 065
  7. VITAMINS (UNSPECIFIED) [Concomitant]
     Route: 065
  8. VITAMIN E [Concomitant]
     Route: 065
  9. PRILOSEC [Concomitant]
     Route: 048
  10. PRILOSEC [Concomitant]
     Route: 048
  11. ELAVIL [Concomitant]
     Route: 048
  12. CARDURA [Concomitant]
     Route: 048
  13. PRAVACHOL [Concomitant]
     Route: 065
  14. MICARDIS [Concomitant]
     Route: 048
  15. PHYTONADIONE [Concomitant]
     Route: 065
  16. GLUCOPHAGE [Concomitant]
     Route: 065
  17. GLUCOVANCE [Concomitant]
     Route: 065

REACTIONS (33)
  - ABDOMINAL PAIN [None]
  - ADVERSE EVENT [None]
  - ANAEMIA [None]
  - ATRIOVENTRICULAR BLOCK FIRST DEGREE [None]
  - BRADYCARDIA [None]
  - CAROTID ARTERY DISEASE [None]
  - CELLULITIS [None]
  - CHEST PAIN [None]
  - CHILLS [None]
  - DIABETIC NEUROPATHY [None]
  - DIPLOPIA [None]
  - EXOSTOSIS [None]
  - GASTRITIS [None]
  - GROIN PAIN [None]
  - HYPERLIPIDAEMIA [None]
  - HYPERTENSION [None]
  - INTERMITTENT CLAUDICATION [None]
  - ISCHAEMIC CARDIOMYOPATHY [None]
  - MITRAL VALVE INCOMPETENCE [None]
  - MYALGIA [None]
  - NAUSEA [None]
  - NEUROPATHY [None]
  - PAIN IN EXTREMITY [None]
  - PERIPHERAL VASCULAR DISORDER [None]
  - PYREXIA [None]
  - RENAL FAILURE [None]
  - SEROMA [None]
  - TRICUSPID VALVE INCOMPETENCE [None]
  - VASCULAR GRAFT OCCLUSION [None]
  - VENTRICULAR HYPERTROPHY [None]
  - VOMITING [None]
  - WEIGHT DECREASED [None]
  - WOUND ABSCESS [None]
